FAERS Safety Report 14330115 (Version 2)
Quarter: 2018Q4

REPORT INFORMATION
  Report Type: Spontaneous
  Country: FI (occurrence: FI)
  Receive Date: 20171227
  Receipt Date: 20181002
  Transmission Date: 20190204
  Serious: Yes (Hospitalization, Other)
  Sender: FDA-Public Use
  Company Number: FI-PFIZER INC-2017543341

PATIENT
  Age: 42 Year
  Sex: Female

DRUGS (1)
  1. CYTOTEC [Suspect]
     Active Substance: MISOPROSTOL
     Indication: LABOUR INDUCTION
     Dosage: 75 UG, THREE TABLETS
     Route: 067
     Dates: start: 20160715

REACTIONS (8)
  - Asthenia [Unknown]
  - Uterine rupture [Recovered/Resolved]
  - Pain [Recovered/Resolved]
  - Uterine haemorrhage [Recovered/Resolved]
  - Infection [Recovered/Resolved]
  - Product use in unapproved indication [Recovered/Resolved]
  - Fatigue [Unknown]
  - Premature separation of placenta [Recovered/Resolved]

NARRATIVE: CASE EVENT DATE: 201607
